FAERS Safety Report 24373037 (Version 1)
Quarter: 2024Q3

REPORT INFORMATION
  Report Type: Spontaneous
  Country: US (occurrence: None)
  Receive Date: 20240927
  Receipt Date: 20240927
  Transmission Date: 20241017
  Serious: No
  Sender: Public
  Company Number: None

PATIENT
  Age: 35 Year
  Sex: Female

DRUGS (1)
  1. ENBREL [Suspect]
     Active Substance: ETANERCEPT
     Indication: Guttate psoriasis
     Dosage: FREQUENCY : WEEKLY;?
     Route: 058
     Dates: start: 202408

REACTIONS (1)
  - Nasopharyngitis [None]
